FAERS Safety Report 9677203 (Version 1)
Quarter: 2013Q4

REPORT INFORMATION
  Report Type: Spontaneous
  Country: US (occurrence: None)
  Receive Date: 20131107
  Receipt Date: 20131107
  Transmission Date: 20140711
  Serious: Yes (Other)
  Sender: FDA-Public Use
  Company Number: None

PATIENT
  Age: 59 Year
  Sex: Female
  Weight: 54.43 kg

DRUGS (11)
  1. RECLAST [Suspect]
     Indication: OSTEOPOROSIS
     Dates: start: 20131025
  2. SYNTHOID [Concomitant]
  3. CYMBALTA [Concomitant]
  4. ENDARBI [Concomitant]
  5. IMITREX [Concomitant]
  6. WELLBUTRIN [Concomitant]
  7. IBROPHEN [Concomitant]
  8. FISHOIL [Concomitant]
  9. CQ 10 [Concomitant]
  10. CALCIUM [Concomitant]
  11. VIT D [Concomitant]

REACTIONS (8)
  - Bone pain [None]
  - Myalgia [None]
  - Lymphadenopathy [None]
  - Arthralgia [None]
  - Diplopia [None]
  - Malaise [None]
  - Groin pain [None]
  - Heart rate increased [None]
